FAERS Safety Report 21768979 (Version 1)
Quarter: 2022Q4

REPORT INFORMATION
  Report Type: Spontaneous
  Country: SA (occurrence: SA)
  Receive Date: 20221222
  Receipt Date: 20221222
  Transmission Date: 20230113
  Serious: Yes (Life-Threatening, Hospitalization, Other)
  Sender: FDA-Public Use
  Company Number: SA-AMGEN-SAUSP2022218604

PATIENT
  Age: 33 Year
  Sex: Female

DRUGS (10)
  1. FILGRASTIM [Suspect]
     Active Substance: FILGRASTIM
     Indication: Neutropenia
     Dosage: UNK
     Route: 065
  2. FILGRASTIM [Suspect]
     Active Substance: FILGRASTIM
     Indication: Off label use
  3. USTEKINUMAB [Concomitant]
     Active Substance: USTEKINUMAB
     Indication: Crohn^s disease
     Dosage: MAINTENANCE DOSES EVERY 8 WEEKS
  4. PIPERACILLIN SODIUM\TAZOBACTAM SODIUM [Concomitant]
     Active Substance: PIPERACILLIN SODIUM\TAZOBACTAM SODIUM
  5. CASPOFUNGIN [Concomitant]
     Active Substance: CASPOFUNGIN
  6. PREDNISOLONE [Concomitant]
     Active Substance: PREDNISOLONE
     Dosage: 40 MILLIGRAM
  7. Immunoglobulin [Concomitant]
  8. ELTROMBOPAG [Concomitant]
     Active Substance: ELTROMBOPAG
     Dosage: FOR 1 WEEK
  9. MERCAPTOPURINE [Concomitant]
     Active Substance: MERCAPTOPURINE
  10. UNSPECIFIED INGREDIENT [Concomitant]
     Active Substance: UNSPECIFIED INGREDIENT

REACTIONS (7)
  - Hyperkalaemia [Unknown]
  - Septic shock [Unknown]
  - Pleural effusion [Unknown]
  - Intra-abdominal fluid collection [Unknown]
  - Acidosis [Unknown]
  - Ileus paralytic [Unknown]
  - Off label use [Unknown]
